FAERS Safety Report 20829248 (Version 1)
Quarter: 2022Q2

REPORT INFORMATION
  Report Type: Spontaneous
  Country: US (occurrence: US)
  Receive Date: 20220513
  Receipt Date: 20220513
  Transmission Date: 20220721
  Serious: No
  Sender: FDA-Public Use
  Company Number: US-SANOFI-01095028

PATIENT
  Age: 64 Year
  Sex: Male

DRUGS (1)
  1. LANTUS SOLOSTAR [Suspect]
     Active Substance: INSULIN GLARGINE
     Indication: Type 1 diabetes mellitus
     Dosage: DRUG STRUCTURE DOSAGE : 24 UNITS DRUG INTERVAL DOSAGE : ONCE A DAY DRUG TREATMENT DURATION:10-15 YEA

REACTIONS (1)
  - Wrong technique in product usage process [Unknown]
